FAERS Safety Report 15611152 (Version 1)
Quarter: 2018Q4

REPORT INFORMATION
  Report Type: Spontaneous
  Country: US (occurrence: US)
  Receive Date: 20181113
  Receipt Date: 20181113
  Transmission Date: 20190205
  Serious: No
  Sender: FDA-Public Use
  Company Number: US-ROCHE-2061573

PATIENT
  Age: 6 Year
  Sex: Female
  Weight: 15.89 kg

DRUGS (2)
  1. TYLENOL [Concomitant]
     Active Substance: ACETAMINOPHEN
  2. TAMIFLU [Suspect]
     Active Substance: OSELTAMIVIR PHOSPHATE
     Indication: INFLUENZA
     Dosage: ONE DOSE TAKEN
     Route: 065
     Dates: start: 20180120

REACTIONS (10)
  - Memory impairment [Recovered/Resolved]
  - Restlessness [Recovered/Resolved]
  - Hallucination [Unknown]
  - Crying [Recovered/Resolved]
  - Disorientation [Unknown]
  - Speech disorder [Unknown]
  - Fear [Recovered/Resolved]
  - Soliloquy [Recovered/Resolved]
  - Feeling abnormal [Recovered/Resolved]
  - Mental fatigue [Unknown]

NARRATIVE: CASE EVENT DATE: 20180120
